FAERS Safety Report 8967137 (Version 2)
Quarter: 2012Q4

REPORT INFORMATION
  Report Type: Report from Study
  Country: DK (occurrence: DK)
  Receive Date: 20121214
  Receipt Date: 20121228
  Transmission Date: 20130627
  Serious: Yes (Hospitalization)
  Sender: FDA-Public Use
  Company Number: DK-ROCHE-1166013

PATIENT

DRUGS (3)
  1. CAPECITABINE [Suspect]
     Indication: GASTRIC CANCER
     Route: 065
     Dates: start: 20120130, end: 20120312
  2. OXALIPLATIN [Suspect]
     Indication: GASTRIC CANCER
     Route: 065
     Dates: start: 20120130, end: 20120312
  3. DOCETAXEL [Suspect]
     Indication: GASTRIC CANCER
     Route: 065
     Dates: start: 20120130, end: 20120312

REACTIONS (3)
  - Abdominal pain [Recovered/Resolved]
  - Back pain [Recovered/Resolved]
  - Duodenal stenosis [Unknown]
